FAERS Safety Report 6528621-0 (Version None)
Quarter: 2010Q1

REPORT INFORMATION
  Report Type: 
  Country: None (occurrence: None)
  Receive Date: 20100105
  Receipt Date: 20100105
  Transmission Date: 20100710
  Serious: No
  Sender: FDA-Public Use
  Company Number: None

PATIENT
  Age: 68 Year
  Sex: Female
  Weight: 65.7716 kg

DRUGS (1)
  1. TYLENOL (CAPLET) [Suspect]
     Indication: MORTON'S NEUROMA
     Dosage: 4 TABS DAILY 2 IN AM. IN PM PO
     Route: 048
     Dates: start: 20091101, end: 20091220

REACTIONS (5)
  - ABDOMINAL PAIN UPPER [None]
  - CONSTIPATION [None]
  - DIARRHOEA [None]
  - DIZZINESS [None]
  - WEIGHT INCREASED [None]
